FAERS Safety Report 9468522 (Version 2)
Quarter: 2013Q4

REPORT INFORMATION
  Report Type: Spontaneous
  Country: US (occurrence: US)
  Receive Date: 20130821
  Receipt Date: 20131009
  Transmission Date: 20140711
  Serious: Yes (Hospitalization)
  Sender: FDA-Public Use
  Company Number: US-GLAXOSMITHKLINE-A1038330A

PATIENT
  Age: 47 Year
  Sex: Female
  Weight: 71.4 kg

DRUGS (7)
  1. BENLYSTA [Suspect]
     Indication: SYSTEMIC LUPUS ERYTHEMATOSUS
     Route: 042
     Dates: start: 201212, end: 201306
  2. PREDNISONE [Suspect]
     Indication: PRODUCT USED FOR UNKNOWN INDICATION
     Route: 065
     Dates: end: 201306
  3. STEROIDS [Suspect]
     Indication: PRODUCT USED FOR UNKNOWN INDICATION
     Route: 065
  4. NSAIDS [Suspect]
     Indication: PRODUCT USED FOR UNKNOWN INDICATION
     Route: 065
  5. TRAMADOL [Concomitant]
  6. PLAQUENIL [Concomitant]
  7. PRILOSEC [Concomitant]

REACTIONS (9)
  - Helicobacter infection [Recovered/Resolved]
  - Cholecystectomy [Recovered/Resolved]
  - Abdominal pain [Recovering/Resolving]
  - Gallbladder disorder [Recovering/Resolving]
  - Gastritis [Recovered/Resolved]
  - Duodenitis [Recovering/Resolving]
  - Hiatus hernia [Recovered/Resolved]
  - Vomiting [Recovering/Resolving]
  - Epigastric discomfort [Recovering/Resolving]
